FAERS Safety Report 4909892-0 (Version None)
Quarter: 2006Q1

REPORT INFORMATION
  Report Type: 
  Country: None (occurrence: None)
  Receive Date: 20060213
  Receipt Date: 20060117
  Transmission Date: 20060701
  Serious: Yes (Other)
  Sender: FDA-Public Use
  Company Number: PHEH2006US01072

PATIENT
  Sex: Female

DRUGS (5)
  1. FAMVIR [Suspect]
     Indication: HERPES SIMPLEX
     Dosage: 125 MG, BID
     Route: 048
  2. FAMVIR [Suspect]
     Dosage: 250 MG, BID
     Route: 048
  3. FLEXERIL [Suspect]
     Indication: MUSCLE RELAXANT THERAPY
  4. NEXIUM [Concomitant]
  5. RESTORIL [Concomitant]

REACTIONS (14)
  - ARTHRITIS [None]
  - BACK PAIN [None]
  - BLINDNESS [None]
  - BLOOD IMMUNOGLOBULIN A DECREASED [None]
  - BURNING SENSATION [None]
  - CEREBROVASCULAR DISORDER [None]
  - CLUSTER HEADACHE [None]
  - DRUG INTERACTION [None]
  - GLOSSITIS [None]
  - GLOSSODYNIA [None]
  - NECK PAIN [None]
  - NERVOUS SYSTEM DISORDER [None]
  - OPTIC NERVE DISORDER [None]
  - SINUS DISORDER [None]
